FAERS Safety Report 22332317 (Version 2)
Quarter: 2023Q2

REPORT INFORMATION
  Report Type: Spontaneous
  Country: JP (occurrence: JP)
  Receive Date: 20230517
  Receipt Date: 20230626
  Transmission Date: 20230722
  Serious: No
  Sender: FDA-Public Use
  Company Number: JP-PFIZER INC-202300185880

PATIENT
  Sex: Male

DRUGS (1)
  1. ENBREL [Suspect]
     Active Substance: ETANERCEPT
     Indication: Rheumatoid arthritis
     Dosage: UNK

REACTIONS (3)
  - Device issue [Unknown]
  - Device difficult to use [Unknown]
  - Poor quality device used [Unknown]

NARRATIVE: CASE EVENT DATE: 20230509
